FAERS Safety Report 17317272 (Version 4)
Quarter: 2020Q1

REPORT INFORMATION
  Report Type: Spontaneous
  Country: US (occurrence: US)
  Receive Date: 20200124
  Receipt Date: 20200226
  Transmission Date: 20200409
  Serious: Yes (Other)
  Sender: FDA-Public Use
  Company Number: US-PFIZER INC-2020032525

PATIENT
  Age: 59 Year
  Sex: Female
  Weight: 84 kg

DRUGS (18)
  1. XELJANZ [Suspect]
     Active Substance: TOFACITINIB CITRATE
     Dosage: 5 MG, UNK [EVERY 3 DAYS]
     Route: 048
  2. PLAQUENIL [Concomitant]
     Active Substance: HYDROXYCHLOROQUINE SULFATE
     Indication: UNDIFFERENTIATED CONNECTIVE TISSUE DISEASE
     Dosage: 200 MG, 2X/DAY
  3. PEPCID [Concomitant]
     Active Substance: FAMOTIDINE
     Dosage: 20 MG, 2X/DAY
  4. CARAFATE [Concomitant]
     Active Substance: SUCRALFATE
     Dosage: 10 MG, 4X/DAY
  5. XELJANZ [Suspect]
     Active Substance: TOFACITINIB CITRATE
     Dosage: 2.5 MG, ALTERNATE DAY
     Route: 048
     Dates: start: 202001, end: 20200122
  6. SINGULAIR [Concomitant]
     Active Substance: MONTELUKAST SODIUM
     Dosage: 10 MG, UNK
  7. METOPROLOL. [Concomitant]
     Active Substance: METOPROLOL
     Dosage: 25 MG, 1X/DAY
  8. CRESTOR [Concomitant]
     Active Substance: ROSUVASTATIN CALCIUM
     Indication: BLOOD CHOLESTEROL ABNORMAL
     Dosage: 5 MG, 1X/DAY
  9. PREDNISONE. [Concomitant]
     Active Substance: PREDNISONE
     Indication: UNDIFFERENTIATED CONNECTIVE TISSUE DISEASE
     Dosage: UNK, 1X/DAY (14-20 MG)
     Dates: start: 201708
  10. XELJANZ XR [Suspect]
     Active Substance: TOFACITINIB CITRATE
     Indication: UNDIFFERENTIATED CONNECTIVE TISSUE DISEASE
     Dosage: 11 MG, 1X/DAY
     Route: 048
     Dates: start: 20190715, end: 20191013
  11. BABY ASPIRIN [Concomitant]
     Active Substance: ASPIRIN
     Dosage: UNK
  12. ZYRTEC [Concomitant]
     Active Substance: CETIRIZINE HYDROCHLORIDE
     Dosage: 10 MG, UNK
  13. ATELVIA [Concomitant]
     Active Substance: RISEDRONATE SODIUM
     Dosage: 35 MG, WEEKLY
  14. XELJANZ [Suspect]
     Active Substance: TOFACITINIB CITRATE
     Indication: UNDIFFERENTIATED CONNECTIVE TISSUE DISEASE
     Dosage: 5 MG, 1X/DAY
     Route: 048
     Dates: start: 20191125
  15. XELJANZ [Suspect]
     Active Substance: TOFACITINIB CITRATE
     Dosage: 2.5 MG, DAILY
     Route: 048
  16. XELJANZ [Suspect]
     Active Substance: TOFACITINIB CITRATE
     Dosage: 2.5 MG, UNK [EVERY 3 DAYS]
     Route: 048
  17. XELJANZ [Suspect]
     Active Substance: TOFACITINIB CITRATE
     Dosage: 2.5 MG, WEEKLY
     Route: 048
     Dates: start: 20200114, end: 202001
  18. XELJANZ [Suspect]
     Active Substance: TOFACITINIB CITRATE
     Dosage: 5 MG, ALTERNATE DAY
     Route: 048

REACTIONS (19)
  - Vulvovaginal pain [Recovering/Resolving]
  - Gastrointestinal disorder [Recovering/Resolving]
  - Oropharyngeal pain [Recovering/Resolving]
  - Weight decreased [Recovering/Resolving]
  - Gastrointestinal sounds abnormal [Recovered/Resolved]
  - Middle insomnia [Unknown]
  - Bronchitis [Unknown]
  - Product use issue [Unknown]
  - Neck pain [Recovered/Resolved]
  - Hiatus hernia [Recovering/Resolving]
  - Dyspepsia [Recovering/Resolving]
  - Lactose intolerance [Recovered/Resolved]
  - Choking sensation [Unknown]
  - Ear discomfort [Unknown]
  - Drug intolerance [Unknown]
  - Product use in unapproved indication [Unknown]
  - Abdominal pain [Recovered/Resolved]
  - Decreased appetite [Unknown]
  - Off label use [Unknown]

NARRATIVE: CASE EVENT DATE: 201907
